FAERS Safety Report 25573364 (Version 1)
Quarter: 2025Q3

REPORT INFORMATION
  Report Type: Spontaneous
  Country: US (occurrence: None)
  Receive Date: 20250716
  Receipt Date: 20250716
  Transmission Date: 20251021
  Serious: Yes (Hospitalization)
  Sender: FDA-CTU
  Company Number: None

PATIENT
  Age: 49 Year
  Sex: Female
  Weight: 69.4 kg

DRUGS (1)
  1. PHENAZOPYRIDINE [Suspect]
     Active Substance: PHENAZOPYRIDINE

REACTIONS (2)
  - Anaemia macrocytic [None]
  - Acute kidney injury [None]

NARRATIVE: CASE EVENT DATE: 20250206
